FAERS Safety Report 9001482 (Version 4)
Quarter: 2014Q1

REPORT INFORMATION
  Report Type: Spontaneous
  Country: GB (occurrence: GB)
  Receive Date: 20130107
  Receipt Date: 20140131
  Transmission Date: 20141002
  Serious: Yes (Life-Threatening, Hospitalization)
  Sender: FDA-Public Use
  Company Number: PHHY2012GB122078

PATIENT
  Age: 67 Year
  Sex: Female

DRUGS (14)
  1. LANSOPRAZOLE [Suspect]
     Dosage: 30 MG, QD IN THE MORNING.
     Route: 048
  2. CIPROFLOXACIN [Suspect]
     Dosage: 500 MG, BID
     Route: 048
     Dates: start: 20110401, end: 20110408
  3. CLARITHROMYCIN [Suspect]
     Dosage: 500 MG, BID
     Route: 048
     Dates: end: 20101102
  4. DOXYCYCLINE [Suspect]
     Dosage: 100 MG, QD
     Route: 048
     Dates: end: 20110502
  5. TRIMETHOPRIM [Suspect]
     Indication: URINARY TRACT INFECTION
     Dosage: 200 MG, BID
     Route: 048
     Dates: start: 20110317, end: 20110321
  6. TRIMETHOPRIM [Suspect]
     Dosage: 200 MG, BID
     Route: 048
     Dates: start: 20110416, end: 20110423
  7. BUMETANIDE [Concomitant]
     Dosage: 2 MG, QD IN THE MORNING.
     Route: 048
  8. AMLODIPINE [Concomitant]
     Dosage: 10 MG, QD EVERY MORNING.
     Route: 048
  9. ASPIRIN [Concomitant]
     Dosage: 75 MG, QD EVERY MORNING
     Route: 048
  10. ATORVASTATIN [Concomitant]
     Dosage: AT NIGHT.80 MG, QD
     Route: 048
  11. BENDROFLUMETHIAZIDE [Concomitant]
     Dosage: 2.5 MG, QD IN THE MORNING.
     Route: 048
  12. IRBESARTAN [Concomitant]
     Dosage: 150 MG, QD IN THE MORNING.
     Route: 048
  13. PARACETAMOL [Concomitant]
     Dosage: FOUR TIMES A DAY AS NECESSARY1 DF, UNK
  14. SALBUTAMOL [Concomitant]
     Dosage: 2-4 PUFFS AS REQUIRED/ INHALED SALBUTAMOL 100MICROGRAMS/DOSE INHALER CFC FREE
     Route: 055

REACTIONS (2)
  - Clostridium difficile colitis [Recovered/Resolved]
  - Diarrhoea [Unknown]
